FAERS Safety Report 22819912 (Version 4)
Quarter: 2024Q2

REPORT INFORMATION
  Report Type: Spontaneous
  Country: US (occurrence: US)
  Receive Date: 20230814
  Receipt Date: 20240528
  Transmission Date: 20240715
  Serious: No
  Sender: FDA-Public Use
  Company Number: US-GSKCCFUS-Case-01773135_AE-99574

PATIENT
  Sex: Male

DRUGS (1)
  1. ANORO ELLIPTA [Suspect]
     Active Substance: UMECLIDINIUM BROMIDE\VILANTEROL TRIFENATATE
     Indication: Product used for unknown indication
     Dosage: UNK

REACTIONS (4)
  - Dyspnoea [Not Recovered/Not Resolved]
  - Wrong technique in device usage process [Unknown]
  - Extra dose administered [Unknown]
  - Product complaint [Unknown]
